FAERS Safety Report 9808512 (Version 1)
Quarter: 2014Q1

REPORT INFORMATION
  Report Type: Spontaneous
  Country: US (occurrence: US)
  Receive Date: 20140110
  Receipt Date: 20140110
  Transmission Date: 20141002
  Serious: Yes (Other)
  Sender: FDA-Public Use
  Company Number: US-GILEAD-2010-0034386

PATIENT
  Age: 40 Year
  Sex: Female

DRUGS (1)
  1. VIREAD [Suspect]
     Indication: CHRONIC HEPATITIS B
     Dates: start: 2010

REACTIONS (1)
  - Viral load increased [Unknown]
